FAERS Safety Report 7461840-8 (Version None)
Quarter: 2011Q2

REPORT INFORMATION
  Report Type: 
  Country: None (occurrence: None)
  Receive Date: 20110506
  Receipt Date: 20110504
  Transmission Date: 20111010
  Serious: No
  Sender: FDA-Public Use
  Company Number: US-PFIZER INC-2011097116

PATIENT
  Sex: Female
  Weight: 47.6 kg

DRUGS (2)
  1. MINOCYCLINE [Concomitant]
     Indication: ACNE
     Dosage: 100 MG, DAILY
     Route: 048
  2. ZOLOFT [Suspect]
     Indication: ANXIETY
     Dosage: 100 MG, DAILY
     Route: 048
     Dates: start: 20110301, end: 20110401

REACTIONS (1)
  - AKATHISIA [None]
